FAERS Safety Report 5745138-1 (Version None)
Quarter: 2008Q2

REPORT INFORMATION
  Report Type: 
  Country: None (occurrence: None)
  Receive Date: 20080521
  Receipt Date: 20080514
  Transmission Date: 20081010
  Serious: No
  Sender: FDA-Public Use
  Company Number: FI-AVENTIS-200814518GDDC

PATIENT
  Age: 27 Year
  Sex: Female

DRUGS (1)
  1. ARAVA [Suspect]
     Dosage: DOSE: UNK
     Dates: start: 20071018, end: 20080128

REACTIONS (1)
  - DRUG EXPOSURE DURING PREGNANCY [None]
